FAERS Safety Report 18081305 (Version 2)
Quarter: 2021Q2

REPORT INFORMATION
  Report Type: Spontaneous
  Country: CA (occurrence: CA)
  Receive Date: 20200728
  Receipt Date: 20210628
  Transmission Date: 20210717
  Serious: Yes (Hospitalization)
  Sender: FDA-Public Use
  Company Number: CA-TEVA-2020-CA-1806102

PATIENT
  Age: 13 Year
  Sex: Male

DRUGS (5)
  1. CLARITHROMYCIN. [Concomitant]
     Active Substance: CLARITHROMYCIN
  2. PREDNISONE. [Concomitant]
     Active Substance: PREDNISONE
  3. SALBUTAMOL [Concomitant]
     Active Substance: ALBUTEROL
  4. AMOXICILLIN. [Suspect]
     Active Substance: AMOXICILLIN
     Dosage: 1500 MILLIGRAM DAILY;
     Route: 048
  5. BENZYDAMINE [Concomitant]
     Active Substance: BENZYDAMINE

REACTIONS (1)
  - Oral mucosal blistering [Unknown]
